FAERS Safety Report 12471039 (Version 1)
Quarter: 2016Q2

REPORT INFORMATION
  Report Type: Spontaneous
  Country: GB (occurrence: GB)
  Receive Date: 20160616
  Receipt Date: 20160616
  Transmission Date: 20160815
  Serious: Yes (Other)
  Sender: FDA-Public Use
  Company Number: GB-WATSON-2016-12327

PATIENT
  Age: 73 Year
  Sex: Female
  Weight: 64 kg

DRUGS (10)
  1. DILTIAZEM HYDROCHLORIDE. [Concomitant]
     Active Substance: DILTIAZEM HYDROCHLORIDE
     Indication: MYOCARDIAL ISCHAEMIA
     Dosage: 90 MG, BID
     Route: 065
     Dates: start: 20130924
  2. ASPIRIN. [Concomitant]
     Active Substance: ASPIRIN
     Indication: MYOCARDIAL ISCHAEMIA
     Dosage: 75 MG, DAILY
     Route: 065
     Dates: start: 20130201
  3. DOXAZOSIN [Suspect]
     Active Substance: DOXAZOSIN\DOXAZOSIN MESYLATE
     Indication: HYPERTENSION
     Dosage: 1 MG, DAILY
     Route: 048
     Dates: start: 20160408
  4. LANSOPRAZOLE. [Concomitant]
     Active Substance: LANSOPRAZOLE
     Indication: PRODUCT USED FOR UNKNOWN INDICATION
     Dosage: 15 MG, DAILY
     Route: 065
     Dates: start: 20131218
  5. DICLOFENAC [Concomitant]
     Active Substance: DICLOFENAC
     Indication: PAIN
     Dosage: 50 MG, TID
     Route: 065
  6. BENDROFLUMETHIAZIDE [Concomitant]
     Active Substance: BENDROFLUMETHIAZIDE
     Indication: HYPERTENSION
     Dosage: 2.5 MG, DAILY
     Route: 065
  7. RAMIPRIL. [Concomitant]
     Active Substance: RAMIPRIL
     Indication: HYPERTENSION
     Dosage: 10 MG, DAILY
     Route: 065
  8. FEXOFENADINE [Concomitant]
     Active Substance: FEXOFENADINE\FEXOFENADINE HYDROCHLORIDE
     Indication: URTICARIA
     Dosage: 180 MG, DAILY
     Route: 065
     Dates: start: 20160127
  9. LESCOL [Concomitant]
     Active Substance: FLUVASTATIN SODIUM
     Indication: MYOCARDIAL ISCHAEMIA
     Dosage: 40 MG, QHS
     Route: 065
     Dates: start: 20110401
  10. EVOREL [Concomitant]
     Indication: HORMONE REPLACEMENT THERAPY
     Dosage: 50 ?G, 2/WEEK
     Route: 062

REACTIONS (3)
  - Haematuria [Unknown]
  - Back pain [Recovering/Resolving]
  - Chromaturia [Unknown]

NARRATIVE: CASE EVENT DATE: 201604
